FAERS Safety Report 15993258 (Version 3)
Quarter: 2019Q2

REPORT INFORMATION
  Report Type: Spontaneous
  Country: US (occurrence: US)
  Receive Date: 20190222
  Receipt Date: 20190507
  Transmission Date: 20190711
  Serious: No
  Sender: FDA-Public Use
  Company Number: US-BIOGEN-2019BI00699854

PATIENT
  Sex: Female

DRUGS (1)
  1. AVONEX [Suspect]
     Active Substance: INTERFERON BETA-1A
     Indication: MULTIPLE SCLEROSIS
     Route: 050
     Dates: start: 20000720, end: 20180801

REACTIONS (5)
  - Influenza like illness [Recovered/Resolved]
  - Drug ineffective [Unknown]
  - Peripheral swelling [Unknown]
  - Gait inability [Recovered/Resolved]
  - Multiple sclerosis [Unknown]
